FAERS Safety Report 23997163 (Version 2)
Quarter: 2024Q3

REPORT INFORMATION
  Report Type: Spontaneous
  Country: JP (occurrence: JP)
  Receive Date: 20240621
  Receipt Date: 20240702
  Transmission Date: 20241016
  Serious: Yes (Other)
  Sender: TAKEDA
  Company Number: JP-TAKEDA-2024TJP009280

PATIENT
  Age: 5 Year
  Sex: Male

DRUGS (5)
  1. RAMELTEON [Suspect]
     Active Substance: RAMELTEON
     Indication: Sleep disorder
     Dosage: UNK
     Route: 065
  2. NITRAZEPAM [Suspect]
     Active Substance: NITRAZEPAM
     Indication: Sleep disorder
     Dosage: UNK
     Route: 065
  3. HYDROXYZINE HYDROCHLORIDE [Suspect]
     Active Substance: HYDROXYZINE HYDROCHLORIDE
     Indication: Sleep disorder
     Dosage: UNK
     Route: 065
  4. SUVOREXANT [Suspect]
     Active Substance: SUVOREXANT
     Indication: Sleep disorder
     Dosage: UNK
     Route: 065
  5. TRICLOFOS SODIUM [Suspect]
     Active Substance: TRICLOFOS SODIUM
     Indication: Sleep disorder
     Dosage: UNK
     Route: 048

REACTIONS (3)
  - Altered state of consciousness [Unknown]
  - Product administered to patient of inappropriate age [Unknown]
  - Off label use [Unknown]
